FAERS Safety Report 7996408-8 (Version None)
Quarter: 2011Q4

REPORT INFORMATION
  Report Type: 
  Country: None (occurrence: None)
  Receive Date: 20111220
  Receipt Date: 20111213
  Transmission Date: 20120403
  Serious: Yes (Hospitalization, Other)
  Sender: FDA-Public Use
  Company Number: PHHY2011GB37375

PATIENT
  Age: 72 Year
  Sex: Female

DRUGS (6)
  1. MIRTAZAPINE [Suspect]
     Indication: DEPRESSION
     Dosage: 15 MG, QD
     Route: 048
     Dates: start: 20101222, end: 20110301
  2. LEVOTHYROXINE SODIUM [Concomitant]
     Dosage: 125 UG, UNK
     Route: 048
  3. INFUMORPH [Concomitant]
     Dosage: 60 MG, BID
     Route: 048
  4. BEZAFIBRATE [Concomitant]
     Dosage: 400 MG, UNK
     Route: 048
  5. DIAZEPAM [Concomitant]
     Indication: ANXIETY
     Dosage: 5 MG, QD AS NECESSARY
     Route: 048
  6. NITRAZEPAM [Concomitant]
     Indication: ANXIETY
     Dosage: 10 MG, UNK
     Route: 048

REACTIONS (3)
  - TEMPORAL ARTERITIS [None]
  - FOREIGN BODY SENSATION IN EYES [None]
  - HEADACHE [None]
